FAERS Safety Report 6004268-X (Version None)
Quarter: 2008Q4

REPORT INFORMATION
  Report Type: 
  Country: None (occurrence: None)
  Receive Date: 20081216
  Receipt Date: 20081215
  Transmission Date: 20090506
  Serious: Yes (Hospitalization)
  Sender: FDA-Public Use
  Company Number: AT-EISAI MEDICAL RESEARCH-E2020-02960-CLI-AT

PATIENT
  Sex: Female
  Weight: 53 kg

DRUGS (6)
  1. DONEPEZIL HCL [Suspect]
     Indication: DEMENTIA ALZHEIMER'S TYPE
     Dosage: DOUBLE BLIND
     Route: 048
     Dates: start: 20080604
  2. MAGNESIUM SULFATE [Concomitant]
     Indication: MEDICAL DIET
     Route: 048
     Dates: start: 20040101
  3. FOLIC ACID [Concomitant]
     Indication: MEDICAL DIET
     Route: 048
     Dates: start: 20060101
  4. ALENDRONATE SODIUM [Concomitant]
     Indication: OSTEOPOROSIS
     Dosage: 70 MG ONCE A WEEK
     Route: 048
     Dates: start: 19960101
  5. OXERUTIN [Concomitant]
     Indication: VARICOSE VEIN
     Route: 048
     Dates: start: 19990101
  6. KOMBI KLAZ [Concomitant]
     Indication: OSTEOPOROSIS
     Route: 048
     Dates: start: 19960101

REACTIONS (5)
  - ANAEMIA [None]
  - BREAST MASS [None]
  - MONOCYTOSIS [None]
  - NEUTROPENIA [None]
  - RENAL IMPAIRMENT [None]
